FAERS Safety Report 19014874 (Version 1)
Quarter: 2021Q1

REPORT INFORMATION
  Report Type: Spontaneous
  Country: US (occurrence: US)
  Receive Date: 20210317
  Receipt Date: 20210317
  Transmission Date: 20210420
  Serious: No
  Sender: FDA-Public Use
  Company Number: US-GLAXOSMITHKLINE-US2021058919

PATIENT
  Age: 48 Year
  Sex: Female

DRUGS (2)
  1. NUCALA [Suspect]
     Active Substance: MEPOLIZUMAB
     Indication: SEVERE ASTHMA WITH FUNGAL SENSITISATION
     Dosage: 100 MG, 28 DAYS
     Dates: start: 201812
  2. BUDESONIDE. [Suspect]
     Active Substance: BUDESONIDE
     Indication: SEVERE ASTHMA WITH FUNGAL SENSITISATION
     Dosage: UNK UNK, BID, 160/4.5 INHALER
     Dates: start: 2009

REACTIONS (2)
  - Product dose omission issue [Unknown]
  - Dyspnoea [Not Recovered/Not Resolved]

NARRATIVE: CASE EVENT DATE: 202102
